FAERS Safety Report 4578118-2 (Version None)
Quarter: 2005Q1

REPORT INFORMATION
  Report Type: 
  Country: None (occurrence: None)
  Receive Date: 20050203
  Receipt Date: 20050203
  Transmission Date: 20050727
  Serious: Yes (Other)
  Sender: FDA-Public Use
  Company Number: None

PATIENT
  Age: 83 Year
  Sex: Female

DRUGS (2)
  1. GATIFLOXACIN [Suspect]
     Indication: URINARY TRACT INFECTION
     Dosage: 400 MG IV
     Route: 042
     Dates: start: 20040125
  2. D5W W/ 10 MEQ/LITER IF POTASSIUM [Concomitant]

REACTIONS (2)
  - INFUSION SITE REACTION [None]
  - PURPLE GLOVE SYNDROME [None]
